FAERS Safety Report 5518384-X (Version None)
Quarter: 2007Q4

REPORT INFORMATION
  Report Type: 
  Country: None (occurrence: None)
  Receive Date: 20071115
  Receipt Date: 20071107
  Transmission Date: 20080405
  Serious: Yes (Hospitalization, Other)
  Sender: FDA-Public Use
  Company Number: US-ROCHE-511387

PATIENT
  Age: 47 Year
  Sex: Female

DRUGS (4)
  1. PEG-INTERFERON A-2A (RO 25-8310) [Suspect]
     Indication: HEPATITIS C VIRUS
     Route: 065
     Dates: start: 20070330
  2. PEG-INTERFERON A-2A (RO 25-8310) [Suspect]
     Route: 065
  3. RIBAVIRIN [Suspect]
     Indication: HEPATITIS C VIRUS
     Route: 065
     Dates: start: 20070330
  4. SYNTHROID [Concomitant]
     Indication: THYROID DISORDER

REACTIONS (5)
  - DELUSION [None]
  - DRUG ADMINISTRATION ERROR [None]
  - GASTROENTERITIS [None]
  - HYPERTHYROIDISM [None]
  - NO ADVERSE REACTION [None]
